FAERS Safety Report 15245583 (Version 1)
Quarter: 2018Q3

REPORT INFORMATION
  Report Type: Spontaneous
  Country: US (occurrence: US)
  Receive Date: 20180713
  Receipt Date: 20180713
  Transmission Date: 20181010
  Serious: No
  Sender: FDA-Public Use
  Company Number: None

PATIENT
  Age: 72 Year
  Sex: Female
  Weight: 65.77 kg

DRUGS (2)
  1. COSOPT PF [Suspect]
     Active Substance: DORZOLAMIDE HYDROCHLORIDE\TIMOLOL MALEATE
     Indication: GLAUCOMA
     Dosage: ?          QUANTITY:1 GTT DROP(S);OTHER ROUTE:DROPS IN EYE?
     Dates: start: 20180415, end: 20180601
  2. CENTRUM MULTI VITAMIN [Concomitant]

REACTIONS (2)
  - Blood pressure increased [None]
  - Post procedural complication [None]

NARRATIVE: CASE EVENT DATE: 20180509
